FAERS Safety Report 5505059-6 (Version None)
Quarter: 2007Q4

REPORT INFORMATION
  Report Type: 
  Country: None (occurrence: None)
  Receive Date: 20071031
  Receipt Date: 20071031
  Transmission Date: 20080405
  Serious: Yes (Other)
  Sender: FDA-Public Use
  Company Number: None

PATIENT
  Sex: Male
  Weight: 92.8 kg

DRUGS (2)
  1. GEMCITABINE [Suspect]
     Indication: OESOPHAGEAL CARCINOMA
     Dosage: 1000MG/M2 D1, 8 IV
     Route: 042
     Dates: start: 20071012, end: 20071019
  2. CAPECITABINE [Suspect]
     Indication: OESOPHAGEAL CARCINOMA
     Dosage: 500MG/M2 D1-14 BID PO
     Route: 048
     Dates: start: 20071012, end: 20071022

REACTIONS (2)
  - LEUKOPENIA [None]
  - THROMBOCYTOPENIA [None]
